FAERS Safety Report 21011190 (Version 2)
Quarter: 2022Q3

REPORT INFORMATION
  Report Type: Other
  Country: KR (occurrence: None)
  Receive Date: 20220627
  Receipt Date: 20220913
  Transmission Date: 20221026
  Serious: Yes (Other)
  Sender: FDA-Public Use
  Company Number: KR-ROCHE-3123608

PATIENT
  Age: 70 Year
  Sex: Male
  Weight: 60.8 kg

DRUGS (7)
  1. ATEZOLIZUMAB [Suspect]
     Active Substance: ATEZOLIZUMAB
     Indication: Hepatocellular carcinoma
     Dosage: ON 28/JUN/2021, 20/JUL/2021 AND 10/AUG/2021, HE RECEIVE THE SUBSEQUENT DOSES OF  BEVACIZUMAB 15 MG/
     Route: 041
     Dates: start: 20210608
  2. BEVACIZUMAB [Suspect]
     Active Substance: BEVACIZUMAB
     Indication: Hepatocellular carcinoma
     Dosage: ON 28/JUN/2021, 20/JUL/2021 AND 10/AUG/2021, HE RECEIVE THE SUBSEQUENT DOSES OF  BEVACIZUMAB 15 MG/
     Route: 042
     Dates: start: 20210608
  3. TENELIGLIPTIN [Concomitant]
     Active Substance: TENELIGLIPTIN
     Indication: Diabetes mellitus
     Dates: start: 202105
  4. AMINO ACIDS, SOURCE UNSPECIFIED [Concomitant]
     Active Substance: AMINO ACIDS, SOURCE UNSPECIFIED
     Dates: start: 20210712
  5. URSODIOL [Concomitant]
     Active Substance: URSODIOL
     Dates: start: 20210614
  6. ALBUMIN HUMAN [Concomitant]
     Active Substance: ALBUMIN HUMAN
     Indication: Hypoalbuminaemia
     Dates: start: 20210608
  7. LASIX [Concomitant]
     Active Substance: FUROSEMIDE
     Indication: Hypoalbuminaemia
     Dates: start: 20210608, end: 20210720

REACTIONS (1)
  - Melaena [Recovered/Resolved]

NARRATIVE: CASE EVENT DATE: 20210828
